FAERS Safety Report 8859199 (Version 1)
Quarter: 2012Q4

REPORT INFORMATION
  Report Type: Spontaneous
  Country: US (occurrence: None)
  Receive Date: 20121024
  Receipt Date: 20121024
  Transmission Date: 20130627
  Serious: Yes (Hospitalization)
  Sender: FDA-Public Use
  Company Number: None

PATIENT
  Sex: Female
  Weight: 54.43 kg

DRUGS (2)
  1. SULFAMETHOXAZOLE/TRIMETHOPRIM [Suspect]
     Dosage: 800/160 mg one dose taken po
     Route: 048
     Dates: start: 20121013, end: 20121013
  2. SULFAMETHOXAZOLE/TRIMETHOPRIM [Suspect]
     Dosage: 800/160 mg BID po
     Route: 048
     Dates: start: 20120822, end: 20120904

REACTIONS (4)
  - Neuralgia [None]
  - Pruritus [None]
  - Oropharyngeal pain [None]
  - Hypoaesthesia oral [None]
